FAERS Safety Report 16979464 (Version 1)
Quarter: 2019Q4

REPORT INFORMATION
  Report Type: Spontaneous
  Country: FR (occurrence: FR)
  Receive Date: 20191031
  Receipt Date: 20191031
  Transmission Date: 20200122
  Serious: Yes (Hospitalization)
  Sender: FDA-Public Use
  Company Number: FR-JNJFOC-20191036840

PATIENT
  Age: 35 Year
  Sex: Female
  Weight: 100 kg

DRUGS (2)
  1. OPTILOVA [Suspect]
     Active Substance: ETHINYL ESTRADIOL\LEVONORGESTREL
     Indication: CONTRACEPTION
     Dosage: 20 MICROGRAMMES/100 MICROGRAMMES
     Route: 048
     Dates: end: 20190923
  2. STELARA [Suspect]
     Active Substance: USTEKINUMAB
     Indication: PSORIASIS
     Dosage: 90 MG
     Route: 058
     Dates: start: 20190909, end: 20190909

REACTIONS (1)
  - Ischaemic stroke [Recovering/Resolving]

NARRATIVE: CASE EVENT DATE: 20190923
